FAERS Safety Report 24636878 (Version 1)
Quarter: 2024Q4

REPORT INFORMATION
  Report Type: Spontaneous
  Country: US (occurrence: None)
  Receive Date: 20241118
  Receipt Date: 20241118
  Transmission Date: 20250115
  Serious: Yes (Other)
  Sender: Public
  Company Number: None

PATIENT
  Age: 30 Year
  Sex: Female

DRUGS (1)
  1. OTEZLA [Suspect]
     Active Substance: APREMILAST
     Dates: start: 20240717, end: 20241118

REACTIONS (5)
  - Drug ineffective [None]
  - Psoriasis [None]
  - Abdominal pain upper [None]
  - Mood swings [None]
  - Hepatic enzyme increased [None]

NARRATIVE: CASE EVENT DATE: 20241002
